FAERS Safety Report 10014813 (Version 2)
Quarter: 2014Q1

REPORT INFORMATION
  Report Type: Spontaneous
  Country: CA (occurrence: CA)
  Receive Date: 20140317
  Receipt Date: 20140317
  Transmission Date: 20141002
  Serious: Yes (Other)
  Sender: FDA-Public Use
  Company Number: CA-ELI_LILLY_AND_COMPANY-CA201402008206

PATIENT
  Sex: Male

DRUGS (1)
  1. CIALIS [Suspect]
     Indication: PRODUCT USED FOR UNKNOWN INDICATION
     Dosage: 20 MG, PRN
     Route: 065

REACTIONS (3)
  - Arterial occlusive disease [Recovering/Resolving]
  - Chest pain [Unknown]
  - Off label use [Unknown]
